FAERS Safety Report 17602684 (Version 1)
Quarter: 2020Q3

REPORT INFORMATION
  Report Type: Spontaneous
  Country: IT (occurrence: IT)
  Receive Date: 20200331
  Receipt Date: 20200331
  Transmission Date: 20201105
  Serious: Yes (Other)
  Sender: FDA-Public Use
  Company Number: IT-JNJFOC-20190424919

PATIENT

DRUGS (9)
  1. FLURBIPROFEN. [Suspect]
     Active Substance: FLURBIPROFEN
     Indication: DRUG PROVOCATION TEST
     Route: 048
  2. IBUPROFEN. [Suspect]
     Active Substance: IBUPROFEN
     Indication: DRUG PROVOCATION TEST
     Route: 048
  3. NIFLUMIC ACID [Suspect]
     Active Substance: NIFLUMIC ACID
     Indication: DRUG PROVOCATION TEST
     Route: 048
  4. PARACETAMOL [Suspect]
     Active Substance: ACETAMINOPHEN
     Indication: DRUG PROVOCATION TEST
     Route: 048
  5. KETOPROFEN. [Suspect]
     Active Substance: KETOPROFEN
     Indication: DRUG PROVOCATION TEST
     Route: 048
  6. DEXKETOPROFENE [Suspect]
     Active Substance: DEXKETOPROFEN
     Indication: DRUG PROVOCATION TEST
     Route: 048
  7. ETORICOXIB. [Suspect]
     Active Substance: ETORICOXIB
     Indication: DRUG PROVOCATION TEST
     Route: 048
  8. METAMIZOLE [Suspect]
     Active Substance: METAMIZOLE
     Indication: DRUG PROVOCATION TEST
     Route: 048
  9. ACETYLSALICYLIC ACID [Suspect]
     Active Substance: ASPIRIN
     Indication: DRUG PROVOCATION TEST
     Route: 048

REACTIONS (21)
  - Dermatitis bullous [Unknown]
  - Rash pruritic [Unknown]
  - Cough [Unknown]
  - Rhinitis [Unknown]
  - Rash maculo-papular [Unknown]
  - Erythema [Unknown]
  - Product use in unapproved indication [Unknown]
  - Angioedema [Unknown]
  - Dysphonia [Unknown]
  - Vomiting [Unknown]
  - Diarrhoea [Unknown]
  - Anaphylactic shock [Unknown]
  - Bronchospasm [Unknown]
  - Off label use [Unknown]
  - Pallor [Unknown]
  - Conjunctivitis [Unknown]
  - Hypersensitivity [Unknown]
  - Asthma [Unknown]
  - Hypothermia [Unknown]
  - Joint swelling [Unknown]
  - Abdominal pain [Unknown]
